FAERS Safety Report 19481243 (Version 2)
Quarter: 2021Q3

REPORT INFORMATION
  Report Type: Other
  Country: PA (occurrence: PA)
  Receive Date: 20210701
  Receipt Date: 20210702
  Transmission Date: 20211014
  Serious: Yes (Death, Hospitalization, Other)
  Sender: FDA-Public Use
  Company Number: PA-ROCHE-2856069

PATIENT
  Sex: Male

DRUGS (6)
  1. BEVACIZUMAB. [Suspect]
     Active Substance: BEVACIZUMAB
     Indication: HEPATOCELLULAR CARCINOMA
     Route: 065
  2. ATEZOLIZUMAB. [Suspect]
     Active Substance: ATEZOLIZUMAB
     Indication: HEPATOCELLULAR CARCINOMA
     Route: 065
  3. CEFTAZIDIME. [Concomitant]
     Active Substance: CEFTAZIDIME
     Route: 042
  4. MORPHINE HYDROCHLORIDE [Concomitant]
     Active Substance: MORPHINE HYDROCHLORIDE
     Dosage: EVERY FOUR HOURS FOR TWO WEEKS
     Route: 058
  5. OMEPRAZOLE. [Concomitant]
     Active Substance: OMEPRAZOLE
     Route: 042
  6. LACTULOSE. [Concomitant]
     Active Substance: LACTULOSE
     Dosage: 30 ML
     Route: 048

REACTIONS (6)
  - Hepatic encephalopathy [Fatal]
  - Hepatic failure [Unknown]
  - Hepatic cirrhosis [Fatal]
  - Gastrointestinal infection [Unknown]
  - Bacterial translocation [Unknown]
  - Constipation [Unknown]

NARRATIVE: CASE EVENT DATE: 20210621
